FAERS Safety Report 6438500-5 (Version None)
Quarter: 2009Q4

REPORT INFORMATION
  Report Type: 
  Country: None (occurrence: None)
  Receive Date: 20091112
  Receipt Date: 20091104
  Transmission Date: 20100525
  Serious: Yes (Hospitalization, Other)
  Sender: FDA-Public Use
  Company Number: GB-MERCK-0911GBR00017

PATIENT
  Age: 82 Year
  Sex: Female

DRUGS (7)
  1. FOSAMAX [Suspect]
     Indication: FRACTURE
     Route: 048
     Dates: start: 20091011, end: 20091015
  2. FOSAMAX [Suspect]
     Indication: PROPHYLAXIS
     Route: 048
     Dates: start: 20091011, end: 20091015
  3. ASPIRIN [Concomitant]
     Indication: PROPHYLAXIS
     Route: 048
     Dates: start: 20091007
  4. CALCIUM CARBONATE AND CHOLECALCIFEROL [Concomitant]
     Route: 048
     Dates: start: 20091007
  5. CITALOPRAM [Concomitant]
     Route: 065
  6. ACETAMINOPHEN [Concomitant]
     Indication: PAIN
     Route: 048
     Dates: start: 20091007
  7. TOLTERODINE [Concomitant]
     Route: 065

REACTIONS (5)
  - ERYTHEMA [None]
  - GLOSSODYNIA [None]
  - LIP SWELLING [None]
  - MOUTH ULCERATION [None]
  - PAIN IN JAW [None]
